FAERS Safety Report 7483996-3 (Version None)
Quarter: 2011Q2

REPORT INFORMATION
  Report Type: 
  Country: None (occurrence: None)
  Receive Date: 20110513
  Receipt Date: 20110513
  Transmission Date: 20111010
  Serious: Yes (Other)
  Sender: FDA-Public Use
  Company Number: None

PATIENT
  Age: 50 Year
  Sex: Female
  Weight: 44.4525 kg

DRUGS (4)
  1. ESTRACE [Suspect]
     Indication: MENOPAUSE
     Dosage: 2 GRAMS DAILY FOR 2 WEEKS VAG; 2 GRAMS TWICE A WEEK AFTER VAG
     Route: 067
     Dates: start: 20101001, end: 20110301
  2. ESTRACE [Suspect]
     Indication: VULVOVAGINAL DRYNESS
     Dosage: 2 GRAMS DAILY FOR 2 WEEKS VAG; 2 GRAMS TWICE A WEEK AFTER VAG
     Route: 067
     Dates: start: 20101001, end: 20110301
  3. ESTRACE [Suspect]
     Indication: MENOPAUSE
     Dosage: 2 GRAMS DAILY FOR 2 WEEKS VAG; 2 GRAMS TWICE A WEEK AFTER VAG
     Route: 067
     Dates: start: 20110401, end: 20110509
  4. ESTRACE [Suspect]
     Indication: VULVOVAGINAL DRYNESS
     Dosage: 2 GRAMS DAILY FOR 2 WEEKS VAG; 2 GRAMS TWICE A WEEK AFTER VAG
     Route: 067
     Dates: start: 20110401, end: 20110509

REACTIONS (3)
  - LOCAL SWELLING [None]
  - PRURITUS [None]
  - SKIN DISCOLOURATION [None]
